FAERS Safety Report 4899693-4 (Version None)
Quarter: 2006Q1

REPORT INFORMATION
  Report Type: 
  Country: None (occurrence: None)
  Receive Date: 20060118
  Receipt Date: 20050527
  Transmission Date: 20060701
  Serious: Yes (Hospitalization)
  Sender: FDA-Public Use
  Company Number: 2005000993

PATIENT
  Age: 71 Year
  Sex: Female

DRUGS (15)
  1. TARCEVA [Suspect]
     Indication: SMALL CELL LUNG CANCER STAGE UNSPECIFIED
     Dosage: ORAL
     Route: 048
  2. WARFARIN SODIUM [Concomitant]
  3. ACETAMINOPHEN [Concomitant]
  4. ALPRAZOLAM [Concomitant]
  5. NORTRIPTYLINE HCL [Concomitant]
  6. ATENOLOL [Concomitant]
  7. CALCIUM CARBONATE (CALCIUM CARBONATE) [Concomitant]
  8. DOCUSATE (DOCUSATE) [Concomitant]
  9. FAMOTIDINE [Concomitant]
  10. VICODIN [Concomitant]
  11. HYDROCORTISONE [Concomitant]
  12. LOPERAMIDE HCL [Concomitant]
  13. MORPHINE [Concomitant]
  14. ONDANSETRON [Concomitant]
  15. MAGNESIUM HYDROXIDE (MAGNESIUM HYDROXIDE) [Concomitant]

REACTIONS (1)
  - INTERNATIONAL NORMALISED RATIO INCREASED [None]
